FAERS Safety Report 8968885 (Version 2)
Quarter: 2013Q1

REPORT INFORMATION
  Report Type: Spontaneous
  Country: JP (occurrence: JP)
  Receive Date: 20121217
  Receipt Date: 20130107
  Transmission Date: 20140127
  Serious: Yes (Hospitalization, Other)
  Sender: FDA-Public Use
  Company Number: JP-ROCHE-1167262

PATIENT
  Age: 66 None
  Sex: Male

DRUGS (16)
  1. AVASTIN [Suspect]
     Indication: RECTAL CANCER METASTATIC
     Dosage: DOSAGE IS UNCERTAIN.
     Route: 041
     Dates: start: 201101, end: 20110707
  2. AVASTIN [Suspect]
     Indication: RECTAL CANCER METASTATIC
     Dosage: DOSAGE IS UNCERTAIN.
     Route: 041
     Dates: start: 20110922, end: 20110922
  3. AVASTIN [Suspect]
     Indication: RECTAL CANCER METASTATIC
     Route: 041
     Dates: start: 20110418, end: 20110707
  4. ELPLAT [Suspect]
     Indication: RECTAL CANCER METASTATIC
     Dosage: DOSAGE IS UNCERTAIN.
     Route: 041
     Dates: start: 201101, end: 20110922
  5. ELPLAT [Suspect]
     Indication: RECTAL CANCER METASTATIC
     Dosage: DOSAGE IS UNCERTAIN.
     Route: 041
     Dates: start: 20110922, end: 20110922
  6. ELPLAT [Suspect]
     Indication: RECTAL CANCER METASTATIC
     Route: 041
     Dates: start: 20110418, end: 20110922
  7. 5-FU [Suspect]
     Indication: RECTAL CANCER METASTATIC
     Dosage: DOSAGE IS UNCERTAIN.
     Route: 040
     Dates: start: 201101, end: 2011
  8. 5-FU [Suspect]
     Indication: RECTAL CANCER METASTATIC
     Dosage: DOSAGE IS UNCERTAIN.
     Route: 041
     Dates: start: 201101, end: 2011
  9. 5-FU [Suspect]
     Indication: RECTAL CANCER METASTATIC
     Route: 040
     Dates: start: 20110418, end: 20110922
  10. 5-FU [Suspect]
     Indication: RECTAL CANCER METASTATIC
     Route: 041
     Dates: start: 20110418, end: 20110924
  11. LEVOFOLINATE [Suspect]
     Indication: RECTAL CANCER METASTATIC
     Dosage: DOSAGE IS UNCERTAIN.
     Route: 041
     Dates: start: 201101, end: 20110707
  12. LEVOFOLINATE [Suspect]
     Indication: RECTAL CANCER METASTATIC
     Dosage: DOSAGE IS UNCERTAIN.
     Route: 041
     Dates: start: 20110922, end: 20110922
  13. LEVOFOLINATE [Suspect]
     Indication: RECTAL CANCER METASTATIC
     Route: 041
     Dates: start: 20110418, end: 20110922
  14. GRANISETRON HYDROCHLORIDE [Concomitant]
     Indication: VOMITING
     Dosage: DRUG REPORTED AS KYTRIL
     Route: 041
     Dates: start: 20110418, end: 20110922
  15. DECADRON [Concomitant]
     Indication: VOMITING
     Route: 042
     Dates: start: 20110418, end: 20110922
  16. EMEND [Concomitant]
     Indication: VOMITING
     Route: 048
     Dates: start: 20110418, end: 20110924

REACTIONS (3)
  - Nausea [Unknown]
  - Gastrooesophageal reflux disease [Recovering/Resolving]
  - Duodenal ulcer [Recovering/Resolving]
